FAERS Safety Report 12559033 (Version 1)
Quarter: 2016Q3

REPORT INFORMATION
  Report Type: Spontaneous
  Country: US (occurrence: US)
  Receive Date: 20160715
  Receipt Date: 20160715
  Transmission Date: 20161109
  Serious: No
  Sender: FDA-Public Use
  Company Number: US-TEVA-660953USA

PATIENT
  Age: 45 Year
  Sex: Female

DRUGS (1)
  1. ZECUITY [Suspect]
     Active Substance: SUMATRIPTAN SUCCINATE
     Dosage: 4 HOURS
     Route: 062

REACTIONS (8)
  - Application site erythema [Not Recovered/Not Resolved]
  - Application site pruritus [Unknown]
  - Device defective [Unknown]
  - Application site pain [Unknown]
  - Device adhesion issue [Unknown]
  - Paraesthesia [Not Recovered/Not Resolved]
  - Application site swelling [Not Recovered/Not Resolved]
  - Device battery issue [Unknown]

NARRATIVE: CASE EVENT DATE: 201605
